FAERS Safety Report 16539737 (Version 3)
Quarter: 2020Q1

REPORT INFORMATION
  Report Type: Spontaneous
  Country: US (occurrence: US)
  Receive Date: 20190708
  Receipt Date: 20200107
  Transmission Date: 20200409
  Serious: Yes (Other)
  Sender: FDA-Public Use
  Company Number: US-PFIZER INC-2019287944

PATIENT
  Age: 66 Year
  Sex: Female
  Weight: 74.83 kg

DRUGS (2)
  1. IBRANCE [Suspect]
     Active Substance: PALBOCICLIB
     Dosage: 100 MG, CYCLIC (D1-21 EVERY 28D)
     Route: 048
     Dates: start: 20181020
  2. IBRANCE [Suspect]
     Active Substance: PALBOCICLIB
     Indication: BREAST CANCER METASTATIC
     Dosage: 125 MG, UNK
     Route: 048
     Dates: start: 20181020

REACTIONS (6)
  - Blood urea increased [Unknown]
  - Blood creatinine increased [Unknown]
  - Diarrhoea [Not Recovered/Not Resolved]
  - Renal impairment [Unknown]
  - Faeces pale [Not Recovered/Not Resolved]
  - Fatigue [Not Recovered/Not Resolved]
